FAERS Safety Report 9886673 (Version 6)
Quarter: 2014Q2

REPORT INFORMATION
  Report Type: Spontaneous
  Country: JP (occurrence: JP)
  Receive Date: 20140210
  Receipt Date: 20140612
  Transmission Date: 20141212
  Serious: Yes (Hospitalization, Other)
  Sender: FDA-Public Use
  Company Number: PHJP2014JP000522

PATIENT
  Age: 62 Year
  Sex: Female

DRUGS (1)
  1. TEGRETOL TAB 200MG [Suspect]
     Dosage: 200 MG, DAILY
     Route: 048

REACTIONS (1)
  - Interstitial lung disease [Unknown]
